FAERS Safety Report 4472708-3 (Version None)
Quarter: 2004Q4

REPORT INFORMATION
  Report Type: 
  Country: None (occurrence: None)
  Receive Date: 20041013
  Receipt Date: 20040907
  Transmission Date: 20050328
  Serious: Yes (Other)
  Sender: FDA-Public Use
  Company Number: PHEH2004US09584

PATIENT
  Age: 66 Year
  Sex: Female

DRUGS (4)
  1. ZELNORM [Suspect]
     Indication: IRRITABLE BOWEL SYNDROME
     Dosage: 6 MG, QD
     Route: 048
     Dates: start: 20040801, end: 20040801
  2. ANTIBIOTICS [Concomitant]
     Indication: DIVERTICULITIS
     Dates: start: 20040801, end: 20040901
  3. ANTIHYPERTENSIVES [Concomitant]
     Indication: HYPERTENSION
  4. PSYCHOTHERAPY [Concomitant]

REACTIONS (4)
  - DIARRHOEA [None]
  - DIZZINESS [None]
  - NAUSEA [None]
  - VOMITING [None]
